FAERS Safety Report 4842489-X (Version None)
Quarter: 2005Q4

REPORT INFORMATION
  Report Type: 
  Country: None (occurrence: None)
  Receive Date: 20051129
  Receipt Date: 20051116
  Transmission Date: 20060501
  Serious: Yes (Other)
  Sender: FDA-Public Use
  Company Number: 2005158039

PATIENT
  Age: 36 Year
  Sex: Male
  Weight: 83.9154 kg

DRUGS (6)
  1. NEURONTIN [Suspect]
     Indication: PAIN
     Dosage: ORAL
     Route: 048
     Dates: start: 20030101, end: 20030101
  2. LYRICA [Suspect]
     Indication: PAIN
     Dosage: 150 MG (150 MG, 1 IN 1 D), ORAL
     Route: 048
     Dates: start: 20051115
  3. SOMA [Suspect]
     Indication: PAIN
     Dosage: ORAL
     Route: 048
  4. LORCET-HD [Suspect]
     Indication: PAIN
     Dosage: ORAL
     Route: 048
  5. CARDURA [Concomitant]
  6. PERCOCET [Concomitant]

REACTIONS (8)
  - DIZZINESS [None]
  - DRUG INEFFECTIVE [None]
  - DRUG INTERACTION [None]
  - EJACULATION FAILURE [None]
  - FEELING DRUNK [None]
  - INTERVERTEBRAL DISC PROTRUSION [None]
  - NERVE INJURY [None]
  - SOMNOLENCE [None]
